FAERS Safety Report 13402438 (Version 1)
Quarter: 2017Q2

REPORT INFORMATION
  Report Type: Spontaneous
  Country: US (occurrence: US)
  Receive Date: 20170404
  Receipt Date: 20170404
  Transmission Date: 20170830
  Serious: Yes (Hospitalization)
  Sender: FDA-Public Use
  Company Number: PHEH2017US009127

PATIENT
  Sex: Female

DRUGS (2)
  1. IBRANCE [Suspect]
     Active Substance: PALBOCICLIB
     Indication: BREAST CANCER
     Dosage: 125 MG, QW3 (DAILY 3 WEEK ON/ 1 WEEK OFF)
     Route: 048
     Dates: start: 20170216
  2. ZOMETA [Suspect]
     Active Substance: ZOLEDRONIC ACID
     Indication: BREAST CANCER
     Route: 065

REACTIONS (5)
  - Nausea [Unknown]
  - Cough [Unknown]
  - Depression [Unknown]
  - Feeding disorder [Unknown]
  - Pyrexia [Unknown]
